FAERS Safety Report 16160219 (Version 1)
Quarter: 2019Q2

REPORT INFORMATION
  Report Type: Spontaneous
  Country: DE (occurrence: DE)
  Receive Date: 20190404
  Receipt Date: 20190404
  Transmission Date: 20190711
  Serious: Yes (Death, Other)
  Sender: FDA-Public Use
  Company Number: DE-TEVA-2018-DE-981782

PATIENT
  Age: 68 Year
  Sex: Female

DRUGS (8)
  1. NOVALGIN (METAMIZOLE SODIUM) [Concomitant]
     Active Substance: METAMIZOLE SODIUM
     Dosage: 90 GTT DAILY; DAILY DOSE: 90 GTT DROP(S) EVERY DAYS
     Route: 065
  2. LYRICA [Concomitant]
     Active Substance: PREGABALIN
     Dosage: 25 MILLIGRAM DAILY; DAILY DOSE: 25 MG MILLGRAM(S) EVERY DAYS
     Route: 065
  3. PARACETAMOL [Suspect]
     Active Substance: ACETAMINOPHEN
     Dosage: 1500 MILLIGRAM DAILY;
     Route: 048
     Dates: start: 20180314, end: 20180514
  4. METHOTREXATE. [Suspect]
     Active Substance: METHOTREXATE
     Indication: LEUKAEMIA
     Route: 058
     Dates: start: 20180314, end: 20180518
  5. PARACETAMOL B. BRAUN MELSUNG [Suspect]
     Active Substance: ACETAMINOPHEN
     Dosage: 1 GRAM DAILY;
     Route: 042
     Dates: start: 20180430, end: 20180501
  6. METHOTREXAT [Concomitant]
     Active Substance: METHOTREXATE
     Route: 065
  7. PARACETAMOL [Suspect]
     Active Substance: ACETAMINOPHEN
     Indication: PAIN IN EXTREMITY
     Dosage: 4 TIMES 1G
     Route: 065
     Dates: start: 20180430, end: 20180502
  8. VITAMIN B COMPLEX [Concomitant]
     Active Substance: CYANOCOBALAMIN\DEXPANTHENOL\NIACINAMIDE\PYRIDOXINE HYDROCHLORIDE\RIBOFLAVIN 5^-PHOSPHATE SODIUM\THIAMINE HYDROCHLORIDE\VITAMIN B COMPLEX
     Dosage: DAILY DOSE: 1 DF DOSAGE FORM EVERY DAYS
     Route: 065

REACTIONS (2)
  - Hepatic failure [Fatal]
  - Hepatic enzyme increased [Fatal]

NARRATIVE: CASE EVENT DATE: 201805
